FAERS Safety Report 8817729 (Version 2)
Quarter: 2012Q4

REPORT INFORMATION
  Report Type: 
  Country: US (occurrence: US)
  Receive Date: 20121001
  Receipt Date: 20121126
  Transmission Date: 20130627
  Serious: Yes (Other)
  Sender: FDA-Public Use
  Company Number: US-PFIZER INC-2012239014

PATIENT
  Age: 52 Year
  Sex: Female
  Weight: 78 kg

DRUGS (3)
  1. ESTROGENS CONJUGATED [Suspect]
     Indication: HORMONE REPLACEMENT THERAPY
     Dosage: UNK
     Dates: start: 2003
  2. HYDROCHLOROTHIAZIDE [Concomitant]
     Indication: BLOOD PRESSURE HIGH
     Dosage: 25 mg, daily
  3. TRICOR [Concomitant]
     Indication: HIGH CHOLESTEROL
     Dosage: 145 mg, daily

REACTIONS (3)
  - Transient ischaemic attack [Recovered/Resolved]
  - Thyroid disorder [Unknown]
  - Hot flush [Unknown]
